FAERS Safety Report 4263024-3 (Version None)
Quarter: 2004Q1

REPORT INFORMATION
  Report Type: 
  Country: None (occurrence: None)
  Receive Date: 20040102
  Receipt Date: 20040102
  Transmission Date: 20041129
  Serious: Yes (Death, Hospitalization)
  Sender: FDA-Public Use
  Company Number: None

PATIENT
  Age: 28 Year
  Sex: Male

DRUGS (7)
  1. VINCRISTINE [Suspect]
     Indication: LEUKAEMIA
     Dosage: 2 MG ONE TIME INTRATRACHEAL
     Route: 039
     Dates: start: 20030724, end: 20030724
  2. METHOTREXATE [Concomitant]
  3. MORPHINE SULFATE [Concomitant]
  4. ZOFRAN [Concomitant]
  5. COLACE [Concomitant]
  6. PAXIL [Concomitant]
  7. DECADRON [Concomitant]

REACTIONS (19)
  - CARDIAC ARREST [None]
  - CONFUSIONAL STATE [None]
  - DIABETES INSIPIDUS [None]
  - DISORIENTATION [None]
  - GASTROINTESTINAL MOTILITY DISORDER [None]
  - GENERAL PHYSICAL HEALTH DETERIORATION [None]
  - HALLUCINATION [None]
  - HEADACHE [None]
  - MEDICATION ERROR [None]
  - NAUSEA [None]
  - NERVOUS SYSTEM DISORDER [None]
  - PNEUMONIA [None]
  - PYREXIA [None]
  - REFLEXES ABNORMAL [None]
  - RESPIRATORY DISORDER [None]
  - RESPIRATORY FAILURE [None]
  - VENTRICULAR FIBRILLATION [None]
  - VISUAL DISTURBANCE [None]
  - VOMITING [None]
